FAERS Safety Report 7215351-5 (Version None)
Quarter: 2011Q1

REPORT INFORMATION
  Report Type: 
  Country: None (occurrence: None)
  Receive Date: 20110105
  Receipt Date: 20110105
  Transmission Date: 20110831
  Serious: Yes (Hospitalization)
  Sender: FDA-Public Use
  Company Number: None

PATIENT
  Age: 60 Year
  Sex: Female
  Weight: 64.4 kg

DRUGS (1)
  1. PHENYTOIN [Suspect]
     Indication: CONVULSION
     Dosage: 230 MG AT BEDTIME PO
     Route: 048
     Dates: start: 20100702, end: 20101227

REACTIONS (5)
  - CONTUSION [None]
  - EXCORIATION [None]
  - FALL [None]
  - INTERVERTEBRAL DISC PROTRUSION [None]
  - TOXICITY TO VARIOUS AGENTS [None]
